FAERS Safety Report 25596596 (Version 2)
Quarter: 2025Q3

REPORT INFORMATION
  Report Type: Spontaneous
  Country: CN (occurrence: CN)
  Receive Date: 20250723
  Receipt Date: 20250724
  Transmission Date: 20251020
  Serious: No
  Sender: ARGENX BVBA
  Company Number: CN-ARGENX-2025-ARGX-CN009625

PATIENT

DRUGS (1)
  1. VYVGART [Suspect]
     Active Substance: EFGARTIGIMOD ALFA-FCAB
     Indication: Encephalitis autoimmune
     Route: 065

REACTIONS (1)
  - Off label use [Unknown]
